FAERS Safety Report 20780896 (Version 3)
Quarter: 2022Q2

REPORT INFORMATION
  Report Type: Spontaneous
  Country: CA (occurrence: CA)
  Receive Date: 20220504
  Receipt Date: 20220524
  Transmission Date: 20220720
  Serious: Yes (Other)
  Sender: FDA-Public Use
  Company Number: CA-JNJFOC-20220457964

PATIENT
  Age: 75 Year
  Sex: Male
  Weight: 75 kg

DRUGS (9)
  1. REMICADE [Suspect]
     Active Substance: INFLIXIMAB
     Indication: Product used for unknown indication
     Route: 042
  2. AMLODIPINE [Concomitant]
     Active Substance: AMLODIPINE BESYLATE
  3. ATENOLOL [Concomitant]
     Active Substance: ATENOLOL
  4. CALCIUM [Concomitant]
     Active Substance: CALCIUM
  5. PERINDOPRIL ARGININE [Concomitant]
     Active Substance: PERINDOPRIL ARGININE
  6. ELIQUIS [Concomitant]
     Active Substance: APIXABAN
  7. MESALAMINE [Concomitant]
     Active Substance: MESALAMINE
  8. STELARA [Concomitant]
     Active Substance: USTEKINUMAB
     Route: 058
  9. CHOLECALCIFEROL [Concomitant]
     Active Substance: CHOLECALCIFEROL

REACTIONS (3)
  - Nephrolithiasis [Unknown]
  - Faecal calprotectin increased [Unknown]
  - Treatment failure [Unknown]
